FAERS Safety Report 9387703 (Version 2)
Quarter: 2013Q3

REPORT INFORMATION
  Report Type: Spontaneous
  Country: GB (occurrence: None)
  Receive Date: 20130701
  Receipt Date: 20130814
  Transmission Date: 20140515
  Serious: Yes (Death, Hospitalization)
  Sender: FDA-Public Use
  Company Number: GB-JNJFOC-20130416919

PATIENT
  Age: 74 Year
  Sex: Female
  Weight: 42.7 kg

DRUGS (6)
  1. DACOGEN (DECITABINE) LYOPHILIZED POWDER [Suspect]
     Indication: MYELODYSPLASTIC SYNDROME
     Dosage: STOPPED
     Route: 042
     Dates: start: 20121217
  2. ITRACONAZOLE (ITRACONAZOLE) [Concomitant]
  3. SPIRONOLACTONE (SPIRONOLACTONE) [Concomitant]
  4. CIPROFLOXACIN (CIPROFLOXACIN) [Concomitant]
  5. DOMPERIDONE (DOMPERIDONE) [Concomitant]
  6. BUTRANS (BUPRENORPHINE) [Concomitant]

REACTIONS (5)
  - Back pain [None]
  - Platelet count decreased [None]
  - Epistaxis [None]
  - Acute myeloid leukaemia [None]
  - Bronchopneumonia [None]
